FAERS Safety Report 10921200 (Version 2)
Quarter: 2019Q3

REPORT INFORMATION
  Report Type: Spontaneous
  Country: FR (occurrence: FR)
  Receive Date: 20150317
  Receipt Date: 20190722
  Transmission Date: 20191004
  Serious: Yes (Death, Hospitalization)
  Sender: FDA-Public Use
  Company Number: FR-SA-2015SA030441

PATIENT
  Age: 73 Year
  Sex: Male
  Weight: 93 kg

DRUGS (15)
  1. LEVOTHYROX [Concomitant]
     Active Substance: LEVOTHYROXINE
     Dosage: UNK
     Route: 065
  2. LOVENOX [Suspect]
     Active Substance: ENOXAPARIN SODIUM
     Indication: TRANSIENT ISCHAEMIC ATTACK
     Dosage: 8000 IU,BID
     Route: 058
     Dates: start: 20150217, end: 20150224
  3. PARACETAMOL [Concomitant]
     Active Substance: ACETAMINOPHEN
     Dosage: UNK
     Route: 065
  4. CALCIUM [Concomitant]
     Active Substance: CALCIUM
     Dosage: UNK
     Route: 065
  5. LOVENOX [Suspect]
     Active Substance: ENOXAPARIN SODIUM
     Dosage: UNK
     Route: 065
  6. SERETIDE [Concomitant]
     Active Substance: FLUTICASONE PROPIONATE\SALMETEROL XINAFOATE
     Dosage: UNK
     Route: 065
  7. FLECAINE [Concomitant]
     Active Substance: FLECAINIDE
     Dosage: UNK
     Route: 065
  8. MIANSERIN HYDROCHLORIDE [Concomitant]
     Active Substance: MIANSERIN HYDROCHLORIDE
     Dosage: UNK
     Route: 065
  9. LERCAN [Concomitant]
     Active Substance: LERCANIDIPINE
     Dosage: UNK
     Route: 065
  10. SINGULAIR [Concomitant]
     Active Substance: MONTELUKAST SODIUM
     Dosage: UNK
     Route: 065
  11. ADENURIC [Concomitant]
     Active Substance: FEBUXOSTAT
     Dosage: UNK
     Route: 065
  12. IMOVANE [Concomitant]
     Active Substance: ZOPICLONE
     Dosage: UNK
     Route: 065
  13. CASODEX [Concomitant]
     Active Substance: BICALUTAMIDE
     Dosage: UNK
     Route: 065
  14. COUMADIN [Suspect]
     Active Substance: WARFARIN SODIUM
     Indication: ATRIAL FIBRILLATION
     Dosage: UNK UNK,UNK
     Route: 048
     Dates: start: 20150211, end: 20150217
  15. PRAVASTATIN. [Concomitant]
     Active Substance: PRAVASTATIN
     Dosage: UNK
     Route: 065

REACTIONS (2)
  - Pleural effusion [Recovered/Resolved]
  - Intra-abdominal haematoma [Recovered/Resolved]

NARRATIVE: CASE EVENT DATE: 20150224
